FAERS Safety Report 5971581-1 (Version None)
Quarter: 2008Q4

REPORT INFORMATION
  Report Type: 
  Country: None (occurrence: None)
  Receive Date: 20081201
  Receipt Date: 20081126
  Transmission Date: 20090506
  Serious: Yes (Death)
  Sender: FDA-Public Use
  Company Number: JP-JNJFOC-20081006813

PATIENT
  Age: 69 Year
  Sex: Female

DRUGS (90)
  1. FENTANYL CITRATE [Suspect]
     Route: 062
  2. FENTANYL CITRATE [Suspect]
     Indication: DRUG USE FOR UNKNOWN INDICATION
     Route: 062
  3. OXYCONTIN [Suspect]
     Indication: DRUG USE FOR UNKNOWN INDICATION
     Route: 048
  4. ITRIZOLE [Concomitant]
     Route: 048
  5. CRAVIT [Concomitant]
     Dosage: EYE DROPS
     Route: 031
  6. FINIBAX [Concomitant]
     Route: 042
  7. TAKEPRON [Concomitant]
     Route: 048
  8. ETIZOLAM [Concomitant]
     Route: 048
  9. SHAKUYAKU-KANZO-TO [Concomitant]
     Dosage: FINE GRAIN
     Route: 048
  10. TEGRETOL [Concomitant]
     Route: 048
  11. GABAPEN [Concomitant]
     Route: 048
  12. NABOAL SR [Concomitant]
     Route: 048
  13. ACRINOL [Concomitant]
     Dosage: MEDICINE FOR EXTERNAL USE
  14. PREDNISOLONE [Concomitant]
     Route: 048
  15. NOVORAPID 300 FLEXPEN [Concomitant]
     Route: 058
  16. ISODINE GARGLE [Concomitant]
     Route: 049
  17. ISODINE GARGLE [Concomitant]
     Dosage: GARGLE
     Route: 049
  18. MAGMITT [Concomitant]
     Route: 048
  19. GLUCOBAY [Concomitant]
     Route: 048
  20. POSTERISAN [Concomitant]
     Route: 061
  21. XYLOCAINE [Concomitant]
     Dosage: JELLY
  22. DEXAMETHASONE [Concomitant]
     Route: 061
  23. AZULENE [Concomitant]
     Route: 061
  24. BISMUTH SUBGALLATE [Concomitant]
     Route: 061
  25. OLIVE OIL [Concomitant]
  26. FRANDOL [Concomitant]
     Route: 062
  27. ISOTONIC SODIUM CHLORIDE SOLUTION [Concomitant]
     Route: 042
  28. CARBENIN [Concomitant]
     Route: 042
  29. SEISHOKU [Concomitant]
     Route: 042
  30. SEISHOKU [Concomitant]
     Route: 042
  31. SEISHOKU [Concomitant]
     Route: 042
  32. SEISHOKU [Concomitant]
     Route: 042
  33. SEISHOKU [Concomitant]
     Route: 042
  34. SEISHOKU [Concomitant]
     Route: 042
  35. GRAN [Concomitant]
     Route: 058
  36. GRAN [Concomitant]
     Route: 058
  37. GRAN [Concomitant]
     Route: 058
  38. GRAN [Concomitant]
     Route: 058
  39. SAXIZON [Concomitant]
     Route: 042
  40. SAXIZON [Concomitant]
     Route: 042
  41. SAXIZON [Concomitant]
     Route: 042
  42. SAXIZON [Concomitant]
     Route: 042
  43. SAXIZON [Concomitant]
     Route: 042
  44. SAXIZON [Concomitant]
     Route: 042
  45. SAXIZON [Concomitant]
     Route: 042
  46. ATARAX [Concomitant]
     Route: 042
  47. ATARAX [Concomitant]
     Route: 042
  48. ATARAX [Concomitant]
     Route: 042
  49. GLUCOSE [Concomitant]
     Route: 042
  50. SOLDEM 1 [Concomitant]
     Route: 042
  51. SOLDEM 1 [Concomitant]
     Route: 042
  52. PRIMPERAN TAB [Concomitant]
     Route: 042
  53. PRIMPERAN TAB [Concomitant]
     Route: 042
  54. PRIMPERAN TAB [Concomitant]
     Route: 042
  55. PRIMPERAN TAB [Concomitant]
     Route: 042
  56. PHYSIO 35 [Concomitant]
     Route: 042
  57. PHYSIO 35 [Concomitant]
     Route: 042
  58. HUMULIN R [Concomitant]
     Route: 042
  59. TARGOCID [Concomitant]
     Route: 042
  60. TARGOCID [Concomitant]
     Route: 042
  61. TARGOCID [Concomitant]
     Route: 042
  62. TARGOCID [Concomitant]
     Route: 042
  63. PENTAZOCINE LACTATE [Concomitant]
     Route: 042
  64. PENTAZOCINE LACTATE [Concomitant]
     Route: 042
  65. OMEPRAL [Concomitant]
     Route: 042
  66. OMEPRAL [Concomitant]
     Route: 042
  67. AMIKACIN SULPHATE [Concomitant]
     Route: 042
  68. SOLDEM 3A [Concomitant]
     Route: 042
  69. SOLDEM 3A [Concomitant]
     Route: 042
  70. SOLDEM 3A [Concomitant]
     Route: 042
  71. FAMOTIDINE [Concomitant]
     Route: 042
  72. FAMOTIDINE [Concomitant]
     Route: 042
  73. ADONA [Concomitant]
     Route: 042
  74. ADONA [Concomitant]
     Route: 042
  75. TRANSAMIN [Concomitant]
     Route: 042
  76. TRANSAMIN [Concomitant]
     Route: 042
  77. ATROPINE SULFATE [Concomitant]
     Route: 042
  78. ATROPINE SULFATE [Concomitant]
     Route: 042
  79. ATROPINE SULFATE [Concomitant]
     Route: 042
  80. ATROPINE SULFATE [Concomitant]
     Route: 042
  81. MEROPEN [Concomitant]
     Route: 042
  82. HABEKACIN [Concomitant]
     Route: 042
  83. LEPETAN [Concomitant]
     Route: 042
  84. PERDIPINE [Concomitant]
     Route: 042
  85. PERDIPINE [Concomitant]
     Route: 042
  86. SELBEX [Concomitant]
     Route: 048
  87. PHENOBARBITAL TAB [Concomitant]
     Route: 042
  88. ROCEPHIN [Concomitant]
     Route: 042
  89. ROCEPHIN [Concomitant]
     Route: 042
  90. VITAMEDIN [Concomitant]
     Route: 042

REACTIONS (2)
  - BRADYCARDIA [None]
  - T-CELL LYMPHOMA [None]
